FAERS Safety Report 19392223 (Version 1)
Quarter: 2021Q2

REPORT INFORMATION
  Report Type: Spontaneous
  Country: JP (occurrence: JP)
  Receive Date: 20210608
  Receipt Date: 20210608
  Transmission Date: 20210717
  Serious: Yes (Other)
  Sender: FDA-Public Use
  Company Number: JP-PFIZER INC-2021627961

PATIENT
  Age: 84 Year
  Sex: Male

DRUGS (3)
  1. LYRICA [Suspect]
     Active Substance: PREGABALIN
     Dosage: 25 MG, 1X/DAY
  2. PREGABALIN. [Suspect]
     Active Substance: PREGABALIN
     Dosage: 150 MG, DAILY (150 MG (2 TABLETS) DAILY)
  3. LYRICA [Suspect]
     Active Substance: PREGABALIN
     Indication: PAIN
     Dosage: 25 MG, 2X/DAY
     Route: 048
     Dates: start: 20200716

REACTIONS (10)
  - Dizziness [Unknown]
  - Dysphagia [Not Recovered/Not Resolved]
  - Diarrhoea [Unknown]
  - Narcolepsy [Unknown]
  - Symptom recurrence [Recovering/Resolving]
  - Facial pain [Unknown]
  - Benign ear neoplasm [Unknown]
  - Ear congestion [Unknown]
  - Fracture [Unknown]
  - Dyslalia [Not Recovered/Not Resolved]

NARRATIVE: CASE EVENT DATE: 20201223
